FAERS Safety Report 8579428-4 (Version None)
Quarter: 2012Q3

REPORT INFORMATION
  Report Type: 
  Country: None (occurrence: None)
  Receive Date: 20120808
  Receipt Date: 20120731
  Transmission Date: 20120928
  Serious: Yes (Hospitalization)
  Sender: FDA-Public Use
  Company Number: JP-VERTEX PHARMACEUTICALS INC.-AE-2012-011233

PATIENT
  Age: 64 Year
  Sex: Female

DRUGS (10)
  1. MOTILIUM [Concomitant]
     Route: 048
     Dates: start: 20120517
  2. TELAVIC [Suspect]
     Route: 048
  3. TELAVIC [Suspect]
     Indication: HEPATITIS C
     Route: 048
     Dates: start: 20120517, end: 20120525
  4. PEG-INTRON [Concomitant]
     Route: 058
     Dates: start: 20120517
  5. GASMOTIN [Concomitant]
     Route: 048
     Dates: start: 20120517
  6. NIZATIDINE [Concomitant]
     Route: 048
     Dates: start: 20120517
  7. TELAVIC [Suspect]
     Route: 048
     Dates: start: 20120718, end: 20120726
  8. REBETOL [Concomitant]
     Route: 048
     Dates: start: 20120614, end: 20120628
  9. REBETOL [Concomitant]
     Route: 048
  10. REBETOL [Concomitant]
     Indication: HEPATITIS C
     Route: 048
     Dates: start: 20120517, end: 20120613

REACTIONS (5)
  - MALAISE [None]
  - DRUG ERUPTION [None]
  - DECREASED APPETITE [None]
  - HAEMOGLOBIN DECREASED [None]
  - HYPERGLYCAEMIA [None]
